FAERS Safety Report 21670868 (Version 1)
Quarter: 2022Q4

REPORT INFORMATION
  Report Type: Spontaneous
  Country: CN (occurrence: CN)
  Receive Date: 20221202
  Receipt Date: 20221202
  Transmission Date: 20230113
  Serious: Yes (Hospitalization, Other)
  Sender: FDA-Public Use
  Company Number: None

PATIENT
  Age: 13 Year
  Sex: Male
  Weight: 54.2 kg

DRUGS (5)
  1. CYCLOPHOSPHAMIDE [Suspect]
     Active Substance: CYCLOPHOSPHAMIDE
     Indication: Acute lymphocytic leukaemia
     Dosage: 1.60 G, QD, DILUTED WITH 250 ML OF OF (4:1) GLUCOSE; SODIUM CHLORIDE
     Route: 041
     Dates: start: 20221104, end: 20221104
  2. DEXTROSE\SODIUM CHLORIDE [Suspect]
     Active Substance: DEXTROSE\SODIUM CHLORIDE
     Indication: Medication dilution
     Dosage: 250 ML, QD, USED TO DILUTE 1.6 G CYCLOPHOSPHAMIDE
     Route: 041
     Dates: start: 20221104, end: 20221104
  3. DEXTROSE\SODIUM CHLORIDE [Suspect]
     Active Substance: DEXTROSE\SODIUM CHLORIDE
     Dosage: 100 ML, BID, USED TO DILUTE 1.6 G CYTARABINE
     Route: 041
     Dates: start: 20221104, end: 20221104
  4. MERCAPTOPURINE [Suspect]
     Active Substance: MERCAPTOPURINE
     Indication: Acute lymphocytic leukaemia
     Dosage: 75 MG, QD
     Route: 048
     Dates: start: 20221104, end: 20221107
  5. CYTARABINE [Suspect]
     Active Substance: CYTARABINE
     Indication: Acute lymphocytic leukaemia
     Dosage: 1.60 G, BID, DILUTED WITH 100 ML OF (4:1) GLUCOSE; SODIUM CHLORIDE
     Route: 041
     Dates: start: 20221104, end: 20221104

REACTIONS (1)
  - Myelosuppression [Recovering/Resolving]

NARRATIVE: CASE EVENT DATE: 20221113
